FAERS Safety Report 9087271 (Version 1)
Quarter: 2013Q1

REPORT INFORMATION
  Report Type: Spontaneous
  Country: US (occurrence: US)
  Receive Date: 20130201
  Receipt Date: 20130201
  Transmission Date: 20140127
  Serious: No
  Sender: FDA-Public Use
  Company Number: US-ABBOTT-12P-163-1024042-00

PATIENT
  Sex: Female

DRUGS (1)
  1. HUMIRA [Suspect]
     Indication: RHEUMATOID ARTHRITIS
     Route: 058
     Dates: start: 20121119

REACTIONS (4)
  - Inappropriate schedule of drug administration [Recovered/Resolved]
  - Urinary tract infection [Recovered/Resolved]
  - Cough [Recovered/Resolved]
  - Nasopharyngitis [Recovered/Resolved]
